FAERS Safety Report 12730652 (Version 1)
Quarter: 2016Q3

REPORT INFORMATION
  Report Type: Spontaneous
  Country: US (occurrence: US)
  Receive Date: 20160910
  Receipt Date: 20160910
  Transmission Date: 20161109
  Serious: No
  Sender: FDA-Public Use
  Company Number: US-ASTRAZENECA-2016SE79344

PATIENT
  Sex: Male
  Weight: 72.6 kg

DRUGS (8)
  1. SIMVASTATIN. [Suspect]
     Active Substance: SIMVASTATIN
     Route: 065
  2. INSULIN, HUMULOG, INJECTION [Concomitant]
     Indication: DIABETES MELLITUS
     Route: 065
  3. CRESTOR [Suspect]
     Active Substance: ROSUVASTATIN CALCIUM
     Indication: BLOOD CHOLESTEROL INCREASED
     Dosage: TWO 5 MG TABLETS AT ONCE FOR A TOTAL DOSE OF 10MG EVERY OTHER DAY
     Route: 048
     Dates: start: 2013, end: 201510
  4. IMODIUM [Concomitant]
     Active Substance: LOPERAMIDE HYDROCHLORIDE
     Route: 065
  5. CRESTOR [Suspect]
     Active Substance: ROSUVASTATIN CALCIUM
     Indication: BLOOD CHOLESTEROL INCREASED
     Route: 048
     Dates: end: 2013
  6. VITAMIN D3 WITH CALCIUM [Concomitant]
     Route: 065
  7. CRESTOR [Suspect]
     Active Substance: ROSUVASTATIN CALCIUM
     Indication: BLOOD CHOLESTEROL INCREASED
     Dosage: TWO 5 MG TABLETS AT ONCE, TOTAL DOSE OF 10MG, FREQUENCY TWO TIMES PER WEEK
     Route: 048
     Dates: start: 201601
  8. ATORVASTATIN [Suspect]
     Active Substance: ATORVASTATIN
     Route: 065
     Dates: start: 201511

REACTIONS (12)
  - Abdominal pain upper [Unknown]
  - Dizziness [Unknown]
  - Nonspecific reaction [Unknown]
  - Bowel movement irregularity [Unknown]
  - Dehydration [Unknown]
  - Burning sensation [Unknown]
  - Intentional product misuse [Unknown]
  - Diarrhoea [Unknown]
  - Blood glucose increased [Unknown]
  - Vomiting [Unknown]
  - Back pain [Unknown]
  - Drug dose omission [Unknown]
